FAERS Safety Report 8273229-2 (Version None)
Quarter: 2012Q2

REPORT INFORMATION
  Report Type: 
  Country: None (occurrence: None)
  Receive Date: 20120411
  Receipt Date: 20120405
  Transmission Date: 20120825
  Serious: Yes (Disabling)
  Sender: FDA-Public Use
  Company Number: US-PFIZER INC-2012086783

PATIENT
  Sex: Female

DRUGS (1)
  1. SUTENT [Suspect]
     Dosage: UNK
     Route: 048

REACTIONS (6)
  - DYSSTASIA [None]
  - WHITE BLOOD CELL COUNT DECREASED [None]
  - ASTHENIA [None]
  - PLATELET COUNT DECREASED [None]
  - TREMOR [None]
  - HAEMOGLOBIN DECREASED [None]
